FAERS Safety Report 7735093-7 (Version None)
Quarter: 2011Q3

REPORT INFORMATION
  Report Type: 
  Country: None (occurrence: None)
  Receive Date: 20110907
  Receipt Date: 20110826
  Transmission Date: 20111222
  Serious: Yes (Other)
  Sender: FDA-Public Use
  Company Number: US-ELI_LILLY_AND_COMPANY-US201109000943

PATIENT
  Age: 68 Year
  Sex: Female

DRUGS (2)
  1. EFFIENT [Suspect]
     Indication: ACUTE CORONARY SYNDROME
     Dosage: 60 MG, LOADING DOSE
     Route: 065
     Dates: start: 20110810
  2. EFFIENT [Suspect]
     Dosage: 10 MG, MAINTENANCE
     Route: 065
     Dates: end: 20110825

REACTIONS (4)
  - OESOPHAGEAL INJURY [None]
  - CHOKING [None]
  - HAEMOPTYSIS [None]
  - VOMITING [None]
